FAERS Safety Report 8240934-3 (Version None)
Quarter: 2012Q1

REPORT INFORMATION
  Report Type: 
  Country: None (occurrence: None)
  Receive Date: 20120328
  Receipt Date: 20120314
  Transmission Date: 20120608
  Serious: Yes (Hospitalization)
  Sender: FDA-Public Use
  Company Number: HR-MYLANLABS-2012S1005802

PATIENT
  Age: 54 Year
  Sex: Male

DRUGS (4)
  1. CLOZAPINE [Suspect]
     Dosage: 300 MG/DAY
     Route: 065
     Dates: start: 20050101
  2. CLOZAPINE [Suspect]
     Indication: BIPOLAR DISORDER
     Dosage: 150 MG/DAY; THEN INCREASED TO 300 MG/DAY
     Route: 065
     Dates: start: 20050101
  3. DIAZEPAM [Concomitant]
     Indication: BIPOLAR DISORDER
     Dosage: 5-10MG AS NEEDED
     Route: 065
     Dates: start: 20050101
  4. GLUCOBAY [Concomitant]
     Indication: DIABETES MELLITUS
     Dosage: 100/DAY
     Route: 048

REACTIONS (4)
  - OBSESSIVE THOUGHTS [None]
  - ANXIETY [None]
  - SUICIDAL IDEATION [None]
  - INSOMNIA [None]
